FAERS Safety Report 8452062-2 (Version None)
Quarter: 2012Q2

REPORT INFORMATION
  Report Type: 
  Country: None (occurrence: None)
  Receive Date: 20120620
  Receipt Date: 20120329
  Transmission Date: 20120825
  Serious: No
  Sender: FDA-Public Use
  Company Number: US-VERTEX PHARMACEUTICALS INC.-AE-2012-004587

PATIENT
  Sex: Female

DRUGS (13)
  1. PROMETHAZINE [Concomitant]
  2. AMITRIPTYLINE HCL [Concomitant]
  3. THYROID TAB [Concomitant]
     Route: 048
  4. CALCIUM [Concomitant]
  5. LEXAPRO [Concomitant]
     Route: 048
  6. XIFAXAN [Concomitant]
     Indication: HEPATIC CIRRHOSIS
     Route: 048
  7. FELODIPINE [Concomitant]
     Route: 048
  8. INCIVEK [Suspect]
     Indication: HEPATITIS C
     Route: 048
     Dates: start: 20120318
  9. RIBASPHERE [Concomitant]
     Indication: HEPATITIS C
     Route: 048
     Dates: start: 20120318
  10. PEGASYS [Concomitant]
     Indication: HEPATITIS C
     Route: 058
     Dates: start: 20120318
  11. ANUSOL HC [Concomitant]
     Indication: HAEMORRHOIDS
  12. RANITIDINE [Concomitant]
     Route: 048
  13. PROAIR HFA [Concomitant]

REACTIONS (1)
  - DIARRHOEA [None]
